FAERS Safety Report 9611822 (Version 1)
Quarter: 2013Q4

REPORT INFORMATION
  Report Type: Spontaneous
  Country: BR (occurrence: BR)
  Receive Date: 20131010
  Receipt Date: 20131010
  Transmission Date: 20140711
  Serious: Yes (Death, Hospitalization, Other)
  Sender: FDA-Public Use
  Company Number: BR-JNJFOC-20131004692

PATIENT
  Sex: Male
  Weight: 150 kg

DRUGS (2)
  1. XARELTO [Suspect]
     Indication: THROMBOPHLEBITIS
     Route: 048
     Dates: end: 20130928
  2. XARELTO [Suspect]
     Indication: THROMBOPHLEBITIS
     Route: 048

REACTIONS (5)
  - Chronic obstructive pulmonary disease [Fatal]
  - Cardiac arrest [Fatal]
  - Dyspnoea [Unknown]
  - Neoplasm malignant [Unknown]
  - Off label use [Unknown]
